FAERS Safety Report 6424930-4 (Version None)
Quarter: 2009Q4

REPORT INFORMATION
  Report Type: 
  Country: None (occurrence: None)
  Receive Date: 20091103
  Receipt Date: 20091022
  Transmission Date: 20100525
  Serious: Yes (Hospitalization)
  Sender: FDA-Public Use
  Company Number: US-PFIZER INC-2006038164

PATIENT
  Sex: Female
  Weight: 63.628 kg

DRUGS (10)
  1. SUNITINIB MALATE [Suspect]
     Indication: RENAL CELL CARCINOMA
     Dosage: 50 MG, 1X/DAY
     Route: 048
     Dates: start: 20060207, end: 20060306
  2. HYDROCHLOROTHIAZIDE [Concomitant]
     Route: 048
     Dates: start: 20041001
  3. PREMARIN [Concomitant]
     Dosage: UNK
     Route: 048
     Dates: start: 19790101
  4. HYDROCODONE [Concomitant]
     Route: 048
     Dates: start: 20051101
  5. PAROXETINE HCL [Concomitant]
     Route: 048
     Dates: start: 20041001
  6. AREDIA [Concomitant]
     Route: 042
     Dates: start: 20040923
  7. ARANESP [Concomitant]
     Route: 058
     Dates: start: 20041209
  8. NORVASC [Concomitant]
     Route: 048
     Dates: start: 20060106
  9. TYLENOL [Concomitant]
     Route: 048
     Dates: start: 20040930
  10. TYLENOL [Concomitant]
     Route: 048
     Dates: start: 19800101

REACTIONS (1)
  - CEREBELLAR INFARCTION [None]
